FAERS Safety Report 21130878 (Version 3)
Quarter: 2024Q1

REPORT INFORMATION
  Report Type: Spontaneous
  Country: ES (occurrence: ES)
  Receive Date: 20220726
  Receipt Date: 20240305
  Transmission Date: 20240410
  Serious: Yes (Hospitalization, Other)
  Sender: FDA-Public Use
  Company Number: ES-STADA-252945

PATIENT
  Age: 47 Year
  Sex: Male

DRUGS (14)
  1. AZITHROMYCIN [Suspect]
     Active Substance: AZITHROMYCIN
     Indication: COVID-19
     Dosage: 500 MILLIGRAM, ONCE A DAY (FOR 5 DAYS)
     Route: 065
     Dates: start: 20200317, end: 20200321
  2. AZITHROMYCIN [Suspect]
     Active Substance: AZITHROMYCIN
     Indication: Staphylococcal bacteraemia
  3. LINEZOLID [Suspect]
     Active Substance: LINEZOLID
     Indication: COVID-19
     Dosage: 600 MILLIGRAM, TWO TIMES A DAY (EVERY 12 HOURS FOR 12 DAYS)
     Route: 065
     Dates: start: 202003
  4. LINEZOLID [Suspect]
     Active Substance: LINEZOLID
     Indication: Staphylococcal bacteraemia
  5. MEROPENEM [Suspect]
     Active Substance: MEROPENEM
     Indication: COVID-19
     Dosage: 1000 MILLIGRAM, 3 TIMES A DAY (1000MG EVERY 8 HOURS FOR 18 DAYS0
     Route: 065
     Dates: start: 202003
  6. MEROPENEM [Suspect]
     Active Substance: MEROPENEM
     Indication: Staphylococcal bacteraemia
  7. CEFTRIAXONE [Suspect]
     Active Substance: CEFTRIAXONE\CEFTRIAXONE SODIUM
     Indication: COVID-19
     Dosage: UNK
     Route: 065
  8. CEFTRIAXONE [Suspect]
     Active Substance: CEFTRIAXONE\CEFTRIAXONE SODIUM
     Indication: Staphylococcal bacteraemia
  9. DAPTOMYCIN [Suspect]
     Active Substance: DAPTOMYCIN
     Indication: COVID-19
     Dosage: 500 MILLIGRAM, ONCE A DAY (500MG DAILY FOR 7 MORE DAY)
     Route: 065
     Dates: start: 202003
  10. DAPTOMYCIN [Suspect]
     Active Substance: DAPTOMYCIN
     Indication: Staphylococcal bacteraemia
  11. HYDROXYCHLOROQUINE [Suspect]
     Active Substance: HYDROXYCHLOROQUINE
     Indication: COVID-19
     Dosage: 200 MILLIGRAM, TWO TIMES A DAY (200MG EVERY 12 HOURS FOR 5 DAYS)
     Route: 065
     Dates: start: 20200317, end: 20200321
  12. HYDROXYCHLOROQUINE [Suspect]
     Active Substance: HYDROXYCHLOROQUINE
     Indication: Staphylococcal bacteraemia
  13. LOPINAVIR\RITONAVIR [Concomitant]
     Active Substance: LOPINAVIR\RITONAVIR
     Indication: COVID-19
     Dosage: TWO TIMES A DAY ( (400/100MG EVERY 12 HOURS FOR 14 DAYS))
     Route: 065
     Dates: start: 20200317, end: 20200330
  14. INTERFERON [Concomitant]
     Active Substance: INTERFERON
     Indication: COVID-19
     Dosage: 250 MILLIGRAM (EVERY 2 DAYS FOR 10 DAYS)
     Route: 065
     Dates: start: 20200317, end: 20200326

REACTIONS (5)
  - Intervertebral discitis [Recovered/Resolved]
  - Systemic candida [Recovered/Resolved]
  - Off label use [Unknown]
  - Drug ineffective for unapproved indication [Unknown]
  - Candida infection [Recovered/Resolved]

NARRATIVE: CASE EVENT DATE: 20200301
